FAERS Safety Report 15210551 (Version 1)
Quarter: 2018Q3

REPORT INFORMATION
  Report Type: Spontaneous
  Country: US (occurrence: US)
  Receive Date: 20180629
  Receipt Date: 20180629
  Transmission Date: 20181010
  Serious: Yes (Other)
  Sender: FDA-Public Use
  Company Number: None

PATIENT
  Age: 74 Year
  Sex: Male
  Weight: 99 kg

DRUGS (14)
  1. TYLENOL [Concomitant]
     Active Substance: ACETAMINOPHEN
  2. BACTRIM DS [Concomitant]
     Active Substance: SULFAMETHOXAZOLE\TRIMETHOPRIM
  3. BACLOFEN. [Concomitant]
     Active Substance: BACLOFEN
  4. GABAPENTIN. [Concomitant]
     Active Substance: GABAPENTIN
  5. BISACODYL. [Concomitant]
     Active Substance: BISACODYL
  6. DOCUSATE [Concomitant]
     Active Substance: DOCUSATE
  7. CARAFATE [Concomitant]
     Active Substance: SUCRALFATE
  8. ASPIRIN. [Concomitant]
     Active Substance: ASPIRIN
  9. ZYTIGA [Suspect]
     Active Substance: ABIRATERONE ACETATE
     Indication: PROSTATE CANCER
     Route: 048
  10. XGEVA [Concomitant]
     Active Substance: DENOSUMAB
  11. PREDNISONE. [Concomitant]
     Active Substance: PREDNISONE
  12. METOPROLOL. [Concomitant]
     Active Substance: METOPROLOL
  13. LOSARTAN. [Concomitant]
     Active Substance: LOSARTAN
  14. CYANOCOBALAMIN. [Concomitant]
     Active Substance: CYANOCOBALAMIN

REACTIONS (1)
  - Hypertension [None]
